FAERS Safety Report 9713283 (Version 1)
Quarter: 2013Q4

REPORT INFORMATION
  Report Type: Spontaneous
  Country: US (occurrence: None)
  Receive Date: 20131125
  Receipt Date: 20131125
  Transmission Date: 20140711
  Serious: No
  Sender: FDA-Public Use
  Company Number: None

PATIENT
  Age: 50 Year
  Sex: Female

DRUGS (13)
  1. ETODOLAC [Concomitant]
  2. LIPITOR [Concomitant]
  3. ROPINOROLE [Concomitant]
  4. LEVOTHYROXINE [Concomitant]
  5. EPIKLOR [Concomitant]
  6. TECFIDERA 240 MG BIOGEN IDEC [Suspect]
     Indication: MULTIPLE SCLEROSIS
     Route: 048
     Dates: start: 20130521, end: 20131122
  7. SAVELLA [Concomitant]
  8. LANSOPRAZOLE [Concomitant]
  9. SERTRALINE [Concomitant]
  10. DOCUSATE [Concomitant]
  11. MULTIVITAMIN [Concomitant]
  12. OXYBUTYNIN [Concomitant]
  13. ETODOLAC [Concomitant]

REACTIONS (2)
  - Muscle twitching [None]
  - Tic [None]
